FAERS Safety Report 5309363-6 (Version None)
Quarter: 2007Q2

REPORT INFORMATION
  Report Type: 
  Country: None (occurrence: None)
  Receive Date: 20070425
  Receipt Date: 20070425
  Transmission Date: 20071010
  Serious: Yes (Life-Threatening)
  Sender: FDA-Public Use
  Company Number: None

PATIENT
  Sex: Female
  Weight: 30 kg

DRUGS (10)
  1. DEXMEDETOMIDINE (PRECEDEX) [Suspect]
     Indication: INTRACRANIAL HAEMATOMA
     Dosage: 0.3 MCG/KG/HR IV CONTINUOUS INFUSION
     Dates: start: 20061203
  2. DEXMEDETOMIDINE (PRECEDEX) [Suspect]
     Indication: INTUBATION
     Dosage: 0.3 MCG/KG/HR IV CONTINUOUS INFUSION
     Dates: start: 20061203
  3. DEXMEDETOMIDINE (PRECEDEX) [Suspect]
     Indication: SEDATIVE THERAPY
     Dosage: 0.3 MCG/KG/HR IV CONTINUOUS INFUSION
     Dates: start: 20061203
  4. DECADRON [Concomitant]
  5. ZANTAC [Concomitant]
  6. ZINACEF [Concomitant]
  7. TYLENOL [Concomitant]
  8. VERSED [Concomitant]
  9. MORPHINE [Concomitant]
  10. ZOFRAN [Concomitant]

REACTIONS (5)
  - BRADYCARDIA [None]
  - CARDIAC ARREST [None]
  - HAEMORRHAGE INTRACRANIAL [None]
  - HYDROCEPHALUS [None]
  - HYPERTENSION [None]
